FAERS Safety Report 9277222 (Version 1)
Quarter: 2013Q2

REPORT INFORMATION
  Report Type: Spontaneous
  Country: NL (occurrence: NL)
  Receive Date: 20130508
  Receipt Date: 20130508
  Transmission Date: 20140414
  Serious: Yes (Death)
  Sender: FDA-Public Use
  Company Number: NL-AMGEN-NLDSP2013031457

PATIENT
  Age: 80 Year
  Sex: Male

DRUGS (9)
  1. XGEVA [Suspect]
     Indication: PROPHYLAXIS
     Dosage: UNK UNK, Q4WK
     Route: 058
     Dates: start: 20120703
  2. CALCICHEW D3 [Concomitant]
     Dosage: 500 MG, UNK
  3. AMARYL [Concomitant]
     Dosage: 3 MG, UNK
  4. SELOKEEN                           /00376902/ [Concomitant]
     Dosage: 50 UNK, UNK
  5. ADALAT OROS [Concomitant]
     Dosage: 30 MG, UNK
  6. RENITEC                            /00574902/ [Concomitant]
     Dosage: 20 MG, UNK
  7. OMNIC OCAS [Concomitant]
     Dosage: 0.4 MG, UNK
  8. BICALUTAMIDE PCH [Concomitant]
     Dosage: 50 MG, UNK
  9. TEMAZEPAM [Concomitant]
     Dosage: 10 MG, UNK

REACTIONS (1)
  - Death [Fatal]
